FAERS Safety Report 19387009 (Version 1)
Quarter: 2021Q2

REPORT INFORMATION
  Report Type: Spontaneous
  Country: US (occurrence: US)
  Receive Date: 20210605
  Receipt Date: 20210605
  Transmission Date: 20210717
  Serious: Yes (Hospitalization)
  Sender: FDA-Public Use
  Company Number: None

PATIENT
  Age: 45 Year
  Sex: Male
  Weight: 91 kg

DRUGS (8)
  1. IFOSFAMIDE. [Suspect]
     Active Substance: IFOSFAMIDE
     Dates: end: 20210503
  2. TAXOL [Suspect]
     Active Substance: PACLITAXEL
     Dates: end: 20210503
  3. PARACETAMOL [Concomitant]
     Active Substance: ACETAMINOPHEN
  4. OMEPRAZOL [Concomitant]
     Active Substance: OMEPRAZOLE
  5. G?CSF (FILGRASTIM, AMGEN) [Suspect]
     Active Substance: FILGRASTIM
     Dates: end: 20210513
  6. AMOXICILLIN + CLAVULANIC ACID [Concomitant]
     Active Substance: AMOXICILLIN\CLAVULANIC ACID
  7. METAMIZOLE [Concomitant]
     Active Substance: METAMIZOLE
  8. CISPLATIN. [Suspect]
     Active Substance: CISPLATIN
     Dates: end: 20210503

REACTIONS (6)
  - Haematotoxicity [None]
  - Asthenia [None]
  - Epistaxis [None]
  - Bicytopenia [None]
  - Anaemia [None]
  - Thrombocytopenia [None]

NARRATIVE: CASE EVENT DATE: 20210516
